FAERS Safety Report 9653788 (Version 1)
Quarter: 2013Q4

REPORT INFORMATION
  Report Type: Spontaneous
  Country: US (occurrence: US)
  Receive Date: 20131029
  Receipt Date: 20131029
  Transmission Date: 20140711
  Serious: No
  Sender: FDA-Public Use
  Company Number: US-BIOGENIDEC-2013BI080996

PATIENT
  Age: 58 Year
  Sex: Female

DRUGS (4)
  1. TECFIDERA [Suspect]
     Indication: MULTIPLE SCLEROSIS
     Route: 048
     Dates: start: 20130710
  2. BYSTOLIC [Concomitant]
  3. PRAVASTATIN SODIUM [Concomitant]
  4. CYMBALTA [Concomitant]

REACTIONS (1)
  - Arthralgia [Unknown]
